FAERS Safety Report 23692115 (Version 1)
Quarter: 2024Q2

REPORT INFORMATION
  Report Type: Spontaneous
  Country: RS (occurrence: RS)
  Receive Date: 20240401
  Receipt Date: 20240401
  Transmission Date: 20240716
  Serious: Yes (Other)
  Sender: FDA-Public Use
  Company Number: RS-002147023-NVSC2024RS066137

PATIENT
  Sex: Female

DRUGS (5)
  1. COSENTYX [Suspect]
     Active Substance: SECUKINUMAB
     Indication: Product used for unknown indication
     Dosage: 300 MG, (150 MGX2) (START DOSE REGIME IN 0,1,2,3 AND 4TH WEEKS, AFTER  THAT MAINTENANCE DOSE ONCE A
     Route: 065
     Dates: start: 202208
  2. METHOTREXATE [Concomitant]
     Active Substance: METHOTREXATE
     Indication: Product used for unknown indication
     Dosage: 10 MG, QW (ONCE A WEEK) (10- 15MG)
     Route: 065
  3. METHOTREXATE [Concomitant]
     Active Substance: METHOTREXATE
     Dosage: 15 MG, QW
     Route: 065
  4. DIPROPHOS [Concomitant]
     Active Substance: BETAMETHASONE DIPROPIONATE\BETAMETHASONE SODIUM PHOSPHATE
     Indication: Product used for unknown indication
     Dosage: UNK (DIPROPHOS AMPULE I)
     Route: 030
  5. ARCOXIA [Concomitant]
     Active Substance: ETORICOXIB
     Indication: Product used for unknown indication
     Dosage: 90 MG (1X1 AS NEEDED)
     Route: 065

REACTIONS (4)
  - Intraductal proliferative breast lesion [Unknown]
  - Arthropathy [Unknown]
  - Dactylitis [Unknown]
  - Pain [Unknown]

NARRATIVE: CASE EVENT DATE: 20230601
